FAERS Safety Report 5725930-X (Version None)
Quarter: 2008Q2

REPORT INFORMATION
  Report Type: 
  Country: None (occurrence: None)
  Receive Date: 20080429
  Receipt Date: 20080414
  Transmission Date: 20081010
  Serious: Yes (Death, Life-Threatening, Other)
  Sender: FDA-Public Use
  Company Number: 47435

PATIENT
  Age: 42 Year
  Sex: Male

DRUGS (1)
  1. MITOXANTRONE [Suspect]
     Indication: MULTIPLE SCLEROSIS

REACTIONS (2)
  - ACUTE MYELOID LEUKAEMIA [None]
  - REFUSAL OF TREATMENT BY PATIENT [None]
